FAERS Safety Report 18677007 (Version 4)
Quarter: 2021Q1

REPORT INFORMATION
  Report Type: Spontaneous
  Country: FR (occurrence: FR)
  Receive Date: 20201229
  Receipt Date: 20210120
  Transmission Date: 20210419
  Serious: Yes (Hospitalization)
  Sender: FDA-Public Use
  Company Number: FR-PFIZER INC-2020488659

PATIENT
  Age: 71 Year
  Sex: Female

DRUGS (5)
  1. MIRTAZAPINE. [Suspect]
     Active Substance: MIRTAZAPINE
     Indication: DEPRESSION
     Dosage: 15 MG, 1X/DAY
     Route: 048
     Dates: start: 20201106, end: 20201116
  2. LORATADINE. [Concomitant]
     Active Substance: LORATADINE
     Dosage: 10 MILLIGRAM, QD
     Route: 048
     Dates: start: 20201106
  3. PANTOPRAZOLE [Suspect]
     Active Substance: PANTOPRAZOLE
     Indication: ABDOMINAL PAIN UPPER
     Dosage: 40 MG, 1X/DAY
     Route: 042
     Dates: start: 20201105, end: 20201116
  4. VORICONAZOLE. [Suspect]
     Active Substance: VORICONAZOLE
     Indication: FUNGAL INFECTION
     Dosage: 200 MG, 1X/DAY
     Route: 048
     Dates: start: 20201105, end: 20201119
  5. TEICOPLANINE MYLAN [Suspect]
     Active Substance: TEICOPLANIN
     Indication: BACTERIAL INFECTION
     Dosage: 200 MG, 1X/DAY
     Route: 042
     Dates: start: 20201103, end: 20201111

REACTIONS (2)
  - Rash maculo-papular [Recovering/Resolving]
  - Off label use [Unknown]

NARRATIVE: CASE EVENT DATE: 20201105
